FAERS Safety Report 23083334 (Version 2)
Quarter: 2023Q4

REPORT INFORMATION
  Report Type: Spontaneous
  Country: CN (occurrence: CN)
  Receive Date: 20231019
  Receipt Date: 20231102
  Transmission Date: 20240109
  Serious: Yes (Other)
  Sender: FDA-Public Use
  Company Number: CN-BRISTOL-MYERS SQUIBB COMPANY-2023-147116

PATIENT
  Age: 46 Year
  Sex: Male

DRUGS (2)
  1. PACLITAXEL [Suspect]
     Active Substance: PACLITAXEL
     Indication: Gallbladder squamous cell carcinoma
     Dosage: DAY 1
     Dates: start: 20220419
  2. CISPLATIN [Concomitant]
     Active Substance: CISPLATIN
     Indication: Gallbladder squamous cell carcinoma
     Dosage: DAY 1-3
     Dates: start: 20220419

REACTIONS (2)
  - Vascular pseudoaneurysm [Recovered/Resolved]
  - Off label use [Unknown]

NARRATIVE: CASE EVENT DATE: 20220423
